FAERS Safety Report 5117638-9 (Version None)
Quarter: 2006Q3

REPORT INFORMATION
  Report Type: 
  Country: None (occurrence: None)
  Receive Date: 20060929
  Receipt Date: 20060920
  Transmission Date: 20061208
  Serious: Yes (Other)
  Sender: FDA-Public Use
  Company Number: JP-ABBOTT-06P-087-0344670-00

PATIENT
  Age: 40 Year
  Sex: Male
  Weight: 54 kg

DRUGS (9)
  1. ERYTHROMYCIN [Suspect]
     Indication: BACTERIAL INFECTION
     Dates: start: 20000313
  2. PRIMAXIN [Suspect]
     Indication: BACTERIAL INFECTION
     Dates: start: 20000313
  3. AMANTADINE HCL [Concomitant]
     Indication: INFLUENZA
     Dates: start: 20000313
  4. IMMUNE GLOBULIN INTRAVENOUS (HUMAN) [Concomitant]
     Indication: DRUG USE FOR UNKNOWN INDICATION
     Dates: start: 20060313
  5. CATECHOLAMINE [Concomitant]
     Indication: DRUG USE FOR UNKNOWN INDICATION
     Dates: start: 20000313, end: 20000401
  6. ULINASTATIN [Concomitant]
     Indication: DRUG USE FOR UNKNOWN INDICATION
     Dates: start: 20000313, end: 20000315
  7. SULTAMICILLIN TOSILATE [Concomitant]
     Indication: BACTERIAL INFECTION
     Dates: start: 20000301
  8. SULPERAZON [Concomitant]
     Indication: BACTERIAL INFECTION
     Dates: start: 20000101
  9. CLINDAMYCIN [Concomitant]
     Indication: BACTERIAL INFECTION
     Dates: start: 20000101

REACTIONS (2)
  - HAEMODIALYSIS [None]
  - RENAL IMPAIRMENT [None]
